FAERS Safety Report 17081692 (Version 1)
Quarter: 2019Q4

REPORT INFORMATION
  Report Type: Spontaneous
  Country: US (occurrence: US)
  Receive Date: 20191126
  Receipt Date: 20191126
  Transmission Date: 20200122
  Serious: Yes (Hospitalization)
  Sender: FDA-Public Use
  Company Number: None

PATIENT
  Age: 8 Year
  Sex: Male

DRUGS (2)
  1. CLONIDINE HCL [Suspect]
     Active Substance: CLONIDINE HYDROCHLORIDE
     Route: 048
  2. URSODIOL 60MG/ML SUSPENSION [Concomitant]
     Dates: start: 20191031

REACTIONS (1)
  - Lethargy [None]

NARRATIVE: CASE EVENT DATE: 20191106
